FAERS Safety Report 10051651 (Version 1)
Quarter: 2014Q1

REPORT INFORMATION
  Report Type: Spontaneous
  Country: US (occurrence: None)
  Receive Date: 20140331
  Receipt Date: 20140331
  Transmission Date: 20141002
  Serious: Yes (Hospitalization, Other)
  Sender: FDA-Public Use
  Company Number: 2014P1002448

PATIENT
  Sex: Female
  Weight: 96.16 kg

DRUGS (5)
  1. MORPHINE [Suspect]
     Indication: PROCEDURAL PAIN
  2. DIPYRIDAMOLE [Suspect]
     Indication: CARDIAC STRESS TEST
     Dosage: PARN
     Dates: start: 2011, end: 2011
  3. DIPYRIDAMOLE [Suspect]
     Dosage: PARN
     Dates: start: 2011, end: 2011
  4. HYDROCHLOROTHIAZIDE [Suspect]
  5. DIOVAN [Concomitant]

REACTIONS (7)
  - Headache [None]
  - Nausea [None]
  - Myalgia [None]
  - Pruritus [None]
  - Hypertension [None]
  - Urticaria [None]
  - Drug hypersensitivity [None]
